FAERS Safety Report 5402418-7 (Version None)
Quarter: 2007Q3

REPORT INFORMATION
  Report Type: 
  Country: None (occurrence: None)
  Receive Date: 20070730
  Receipt Date: 20070730
  Transmission Date: 20080115
  Serious: No
  Sender: FDA-Public Use
  Company Number: None

PATIENT
  Age: 51 Year
  Sex: Female
  Weight: 81.6475 kg

DRUGS (1)
  1. PRILOSEC OTC [Suspect]
     Indication: ULCER
     Dosage: 2 PER DAY PO
     Route: 048
     Dates: start: 20070521, end: 20070528

REACTIONS (4)
  - INSOMNIA [None]
  - IRRITABILITY [None]
  - MYALGIA [None]
  - PAIN IN EXTREMITY [None]
